FAERS Safety Report 19905183 (Version 1)
Quarter: 2021Q3

REPORT INFORMATION
  Report Type: Spontaneous
  Country: US (occurrence: US)
  Receive Date: 20210930
  Receipt Date: 20210930
  Transmission Date: 20211014
  Serious: Yes (Disabling)
  Sender: FDA-Public Use
  Company Number: None

PATIENT
  Age: 30 Year
  Sex: Male
  Weight: 76.5 kg

DRUGS (1)
  1. DEXTROAMPHETAMINE 10 MG GENERIC FOR DEXTROSTAT 10MG TABLET [Suspect]
     Active Substance: DEXTROAMPHETAMINE SULFATE
     Indication: ATTENTION DEFICIT HYPERACTIVITY DISORDER
     Dosage: ?          QUANTITY:2 TABLET(S);?
     Route: 048
     Dates: start: 20210930

REACTIONS (6)
  - Anger [None]
  - Product substitution issue [None]
  - Anxiety [None]
  - Adverse drug reaction [None]
  - Feeling jittery [None]
  - Obsessive thoughts [None]

NARRATIVE: CASE EVENT DATE: 20210930
